FAERS Safety Report 4667671-6 (Version None)
Quarter: 2005Q2

REPORT INFORMATION
  Report Type: 
  Country: None (occurrence: None)
  Receive Date: 20050520
  Receipt Date: 20050512
  Transmission Date: 20051028
  Serious: Yes (Congenital Anomaly)
  Sender: FDA-Public Use
  Company Number: GB-ABBOTT-05P-167-0300475-00

PATIENT

DRUGS (5)
  1. DEPAKOTE [Suspect]
     Indication: DRUG EXPOSURE DURING PREGNANCY
  2. ACE INHIBITOR NOS [Suspect]
     Indication: DRUG EXPOSURE DURING PREGNANCY
  3. REBOXETINE [Suspect]
     Indication: DRUG EXPOSURE DURING PREGNANCY
  4. UNSPECIFIED NEUROLEPTIC [Suspect]
     Indication: DRUG EXPOSURE DURING PREGNANCY
  5. THYROXINE [Suspect]
     Indication: DRUG EXPOSURE DURING PREGNANCY

REACTIONS (3)
  - CONGENITAL ANOMALY [None]
  - DEVELOPMENTAL DELAY [None]
  - DRUG EXPOSURE DURING PREGNANCY [None]
